FAERS Safety Report 14064055 (Version 2)
Quarter: 2017Q4

REPORT INFORMATION
  Report Type: Spontaneous
  Country: JP (occurrence: JP)
  Receive Date: 20171009
  Receipt Date: 20171018
  Transmission Date: 20180321
  Serious: Yes (Hospitalization, Other)
  Sender: FDA-Public Use
  Company Number: JP-NOVOPROD-558423

PATIENT
  Age: 50 Year
  Sex: Male
  Weight: 63 kg

DRUGS (2)
  1. GLUCAGON G NOVO [Suspect]
     Active Substance: GLUCAGON
     Indication: ENDOSCOPY LARGE BOWEL
     Dosage: 1 MG, QD
     Route: 042
     Dates: start: 20170804, end: 20170804
  2. PETHIDINE HYDROCHLORIDE [Suspect]
     Active Substance: MEPERIDINE HYDROCHLORIDE
     Indication: ENDOSCOPY LARGE BOWEL
     Dosage: 35 MG, QD
     Route: 042
     Dates: start: 20170804, end: 20170804

REACTIONS (3)
  - Heart rate decreased [Unknown]
  - Supraventricular extrasystoles [Recovered/Resolved]
  - Hypotension [Recovered/Resolved]

NARRATIVE: CASE EVENT DATE: 20170804
